FAERS Safety Report 12430637 (Version 1)
Quarter: 2016Q2

REPORT INFORMATION
  Report Type: Spontaneous
  Country: US (occurrence: US)
  Receive Date: 20160602
  Receipt Date: 20160602
  Transmission Date: 20160815
  Serious: Yes (Other)
  Sender: FDA-Public Use
  Company Number: US-PURDUE-USA-2016-0131210

PATIENT
  Sex: Female

DRUGS (1)
  1. BUTRANS [Suspect]
     Active Substance: BUPRENORPHINE
     Indication: PRODUCT USED FOR UNKNOWN INDICATION
     Dosage: 20 MCG/HR, WEEKLY
     Route: 062

REACTIONS (7)
  - Application site exfoliation [Unknown]
  - Application site erosion [Unknown]
  - Application site infection [Unknown]
  - Application site scar [Unknown]
  - Application site vesicles [Unknown]
  - Hypersensitivity [Unknown]
  - Product adhesion issue [Unknown]
